FAERS Safety Report 21119601 (Version 1)
Quarter: 2022Q3

REPORT INFORMATION
  Report Type: Spontaneous
  Country: US (occurrence: None)
  Receive Date: 20220721
  Receipt Date: 20220721
  Transmission Date: 20221027
  Serious: No
  Sender: FDA-Public Use
  Company Number: None

PATIENT
  Age: 63 Year
  Sex: Female
  Weight: 56.7 kg

DRUGS (1)
  1. AJOVY [Suspect]
     Active Substance: FREMANEZUMAB-VFRM
     Indication: Vestibular migraine
     Dates: start: 20220707

REACTIONS (6)
  - Muscle twitching [None]
  - Pain [None]
  - Muscle tightness [None]
  - Anxiety [None]
  - Insomnia [None]
  - Psychomotor hyperactivity [None]

NARRATIVE: CASE EVENT DATE: 20220707
